FAERS Safety Report 12666042 (Version 2)
Quarter: 2021Q1

REPORT INFORMATION
  Report Type: Spontaneous
  Country: US (occurrence: US)
  Receive Date: 20160818
  Receipt Date: 20210104
  Transmission Date: 20210419
  Serious: No
  Sender: FDA-Public Use
  Company Number: US-JAZZ-2016-US-005495

PATIENT
  Sex: Female
  Weight: 102.95 kg

DRUGS (26)
  1. LIBRAX [Concomitant]
     Active Substance: CHLORDIAZEPOXIDE HYDROCHLORIDE\CLIDINIUM BROMIDE
  2. EPIDUO [Concomitant]
     Active Substance: ADAPALENE\BENZOYL PEROXIDE
  3. CLEOCIN T [Concomitant]
     Active Substance: CLINDAMYCIN PHOSPHATE
  4. FLONASE [Concomitant]
     Active Substance: FLUTICASONE PROPIONATE
  5. BETHANECHOL [BETHANECHOL CHLORIDE] [Concomitant]
  6. EPIPEN [Concomitant]
     Active Substance: EPINEPHRINE
  7. XYREM [Suspect]
     Active Substance: SODIUM OXYBATE
     Dosage: 4.5 G, BID
     Route: 048
     Dates: start: 201507
  8. LYRICA [Concomitant]
     Active Substance: PREGABALIN
  9. LACTULOSE. [Concomitant]
     Active Substance: LACTULOSE
  10. INFUSION DIGESTION [Concomitant]
  11. PROMETHAZINE [PROMETHAZINE HYDROCHLORIDE] [Concomitant]
     Active Substance: PROMETHAZINE HYDROCHLORIDE
  12. SINGULAIR [Concomitant]
     Active Substance: MONTELUKAST SODIUM
  13. ELAVIL [Concomitant]
     Active Substance: AMITRIPTYLINE HYDROCHLORIDE
  14. XYREM [Suspect]
     Active Substance: SODIUM OXYBATE
     Indication: NARCOLEPSY
     Dosage: 2.25 G, BID
     Route: 048
     Dates: start: 201504, end: 201505
  15. VITAMIN D3 [Concomitant]
     Active Substance: CHOLECALCIFEROL
  16. HUMIRA [Concomitant]
     Active Substance: ADALIMUMAB
  17. IMURAN [Concomitant]
     Active Substance: AZATHIOPRINE
  18. SAPHRIS [Concomitant]
     Active Substance: ASENAPINE MALEATE
  19. KENALOG [Concomitant]
     Active Substance: TRIAMCINOLONE ACETONIDE
  20. DELTASONE [PREDNISOLONE] [Concomitant]
  21. PREDNISONE. [Concomitant]
     Active Substance: PREDNISONE
  22. DEXTROAMPHETAMINE [DEXAMFETAMINE SULFATE] [Concomitant]
     Active Substance: DEXTROAMPHETAMINE SULFATE
  23. PROVIGIL [Concomitant]
     Active Substance: MODAFINIL
  24. XYREM [Suspect]
     Active Substance: SODIUM OXYBATE
     Indication: CATAPLEXY
     Dosage: DOSE ADJUSTMENT
     Route: 048
     Dates: start: 2015, end: 2015
  25. ZYRTEC [Concomitant]
     Active Substance: CETIRIZINE HYDROCHLORIDE
  26. ADDERALL [Concomitant]
     Active Substance: AMPHETAMINE ASPARTATE\AMPHETAMINE SULFATE\DEXTROAMPHETAMINE SACCHARATE\DEXTROAMPHETAMINE SULFATE

REACTIONS (4)
  - Somnambulism [Unknown]
  - Condition aggravated [Unknown]
  - Parasomnia [Unknown]
  - Tachycardia [Unknown]

NARRATIVE: CASE EVENT DATE: 2015
